FAERS Safety Report 15026773 (Version 1)
Quarter: 2018Q2

REPORT INFORMATION
  Report Type: Report from Study
  Country: None (occurrence: CA)
  Receive Date: 20180619
  Receipt Date: 20180619
  Transmission Date: 20180711
  Serious: Yes (Hospitalization)
  Sender: FDA-Public Use
  Company Number: CA-ABBVIE-18K-028-2352566-00

PATIENT
  Age: 71 Year
  Sex: Male

DRUGS (3)
  1. HUMIRA [Suspect]
     Active Substance: ADALIMUMAB
     Dosage: LAST INJECTION 1 DAY LATE, ON 05 MAY 2018 INSTEAD OF 04-MAY-2018
     Route: 058
  2. HUMIRA [Suspect]
     Active Substance: ADALIMUMAB
     Indication: CROHN^S DISEASE
     Dosage: MISSED INJECTION FEW TIMES ON UNKNOWN DATES
     Route: 058
     Dates: start: 20170510
  3. TAMSULOSIN [Concomitant]
     Active Substance: TAMSULOSIN
     Indication: BENIGN PROSTATIC HYPERPLASIA
     Route: 048

REACTIONS (8)
  - Adhesion [Recovered/Resolved]
  - Intentional product misuse [Unknown]
  - Small intestinal obstruction [Recovered/Resolved]
  - Constipation [Recovered/Resolved]
  - Abdominal distension [Recovered/Resolved]
  - Hospitalisation [Unknown]
  - Abdominal pain [Recovered/Resolved]
  - Intestinal dilatation [Unknown]

NARRATIVE: CASE EVENT DATE: 20170204
